FAERS Safety Report 22593730 (Version 3)
Quarter: 2024Q1

REPORT INFORMATION
  Report Type: Spontaneous
  Country: JP (occurrence: None)
  Receive Date: 20230613
  Receipt Date: 20240312
  Transmission Date: 20240409
  Serious: Yes (Other)
  Sender: FDA-Public Use
  Company Number: 2023A119724

PATIENT
  Age: 72 Year
  Sex: Male

DRUGS (6)
  1. ONDEXXYA [Suspect]
     Active Substance: ANDEXANET ALFA
     Indication: Haemorrhage
     Dosage: DOSE UNKNOWN880.0MG UNKNOWN
     Route: 042
     Dates: start: 20221228, end: 20221228
  2. HEPARIN CALCIUM [Suspect]
     Active Substance: HEPARIN CALCIUM
     Dosage: 300 IU/KG
     Dates: start: 20221228, end: 20221228
  3. HEPARIN CALCIUM [Suspect]
     Active Substance: HEPARIN CALCIUM
     Dosage: 20000 IU
     Dates: start: 20221228, end: 20221228
  4. HEPARIN CALCIUM [Suspect]
     Active Substance: HEPARIN CALCIUM
     Dosage: 30000 IU
     Dates: start: 20221228
  5. ELIQUIS [Concomitant]
     Active Substance: APIXABAN
     Dosage: DOSE UNKNOWN
  6. HUMAN BLOOD PREPARATIONS [Concomitant]
     Dosage: DOSE UNKNOWN
     Dates: start: 20221228

REACTIONS (1)
  - Heparin resistance [Recovered/Resolved]

NARRATIVE: CASE EVENT DATE: 20221228
